FAERS Safety Report 20182021 (Version 1)
Quarter: 2021Q4

REPORT INFORMATION
  Report Type: Spontaneous
  Country: GB (occurrence: GB)
  Receive Date: 20211214
  Receipt Date: 20211214
  Transmission Date: 20220303
  Serious: Yes (Other)
  Sender: FDA-Public Use
  Company Number: None

PATIENT
  Age: 19 Year
  Sex: Male
  Weight: 100 kg

DRUGS (3)
  1. METHYLPHENIDATE [Suspect]
     Active Substance: METHYLPHENIDATE
     Indication: Attention deficit hyperactivity disorder
     Dosage: 54 MILLIGRAM, QD (54MG EXTENDED RELEASE ONCE DAILY)
     Route: 048
     Dates: start: 20201208
  2. PROCHLORPERAZINE [Suspect]
     Active Substance: PROCHLORPERAZINE
     Indication: Vertigo
     Dosage: 5 MILLIGRAM, PRN (5MG AS NEEDED TO REDUCE VERTIGO SYMPTOMS)
     Route: 048
     Dates: start: 20210424, end: 20210505
  3. LISDEXAMFETAMINE DIMESYLATE [Concomitant]
     Active Substance: LISDEXAMFETAMINE DIMESYLATE
     Indication: Ill-defined disorder
     Dosage: UNK

REACTIONS (4)
  - Angle closure glaucoma [Unknown]
  - Brain neoplasm [Unknown]
  - Visual impairment [Not Recovered/Not Resolved]
  - Headache [Unknown]

NARRATIVE: CASE EVENT DATE: 20210429
